FAERS Safety Report 20922472 (Version 11)
Quarter: 2023Q4

REPORT INFORMATION
  Report Type: Spontaneous
  Country: US (occurrence: US)
  Receive Date: 20220607
  Receipt Date: 20231211
  Transmission Date: 20240109
  Serious: No
  Sender: FDA-Public Use
  Company Number: US-PHARMAESSENTIA CORPORATION-US-2022-PEC-000576

PATIENT
  Sex: Female

DRUGS (16)
  1. BESREMI [Suspect]
     Active Substance: ROPEGINTERFERON ALFA-2B-NJFT
     Indication: Polycythaemia vera
     Dosage: 100MCG ONCE EVERY 2 WEEKS, INCREASE DOSE 50MCG EVERY 2 WEEKS AS DIRECTED
     Route: 058
     Dates: start: 20220323
  2. BESREMI [Suspect]
     Active Substance: ROPEGINTERFERON ALFA-2B-NJFT
     Dosage: UNK
     Route: 058
     Dates: start: 20220407
  3. BESREMI [Suspect]
     Active Substance: ROPEGINTERFERON ALFA-2B-NJFT
     Dosage: 200 MCG, Q2W
     Route: 058
  4. BESREMI [Suspect]
     Active Substance: ROPEGINTERFERON ALFA-2B-NJFT
     Dosage: UNK
     Route: 058
  5. BESREMI [Suspect]
     Active Substance: ROPEGINTERFERON ALFA-2B-NJFT
     Dosage: 250 MCG
     Route: 058
     Dates: start: 20220908
  6. BESREMI [Suspect]
     Active Substance: ROPEGINTERFERON ALFA-2B-NJFT
     Dosage: UNK
     Route: 058
     Dates: start: 20220922
  7. BESREMI [Suspect]
     Active Substance: ROPEGINTERFERON ALFA-2B-NJFT
     Dosage: 300 MCG
     Route: 058
     Dates: start: 20221103
  8. BESREMI [Suspect]
     Active Substance: ROPEGINTERFERON ALFA-2B-NJFT
     Dosage: 300 MCG
     Route: 058
  9. BESREMI [Suspect]
     Active Substance: ROPEGINTERFERON ALFA-2B-NJFT
     Dosage: 300 MCG, Q2W
     Route: 065
  10. BESREMI [Suspect]
     Active Substance: ROPEGINTERFERON ALFA-2B-NJFT
     Dosage: 200 MCG, EVERY 4 WEEKS
     Route: 058
  11. ASPIRIN [Concomitant]
     Active Substance: ASPIRIN
     Indication: Anticoagulant therapy
     Dosage: 81 MG, QD
     Route: 048
     Dates: start: 202111
  12. HYDROXYUREA [Concomitant]
     Active Substance: HYDROXYUREA
     Indication: Product used for unknown indication
     Dosage: 500 MG (EVERY OTHER DAY)
     Route: 065
  13. HYDROXYUREA [Concomitant]
     Active Substance: HYDROXYUREA
     Dosage: UNK
     Route: 065
     Dates: end: 20220824
  14. VITAMIN D NOS [Concomitant]
     Active Substance: VITAMIN D NOS
     Indication: Product used for unknown indication
     Dosage: UNK
     Route: 065
  15. VITAMIN C [Concomitant]
     Active Substance: ASCORBIC ACID
     Indication: Product used for unknown indication
     Dosage: UNK
     Route: 065
  16. ZINC [Concomitant]
     Active Substance: PYRITHIONE ZINC\ZINC\ZINC CHLORIDE
     Indication: Product used for unknown indication
     Dosage: UNK
     Route: 065

REACTIONS (45)
  - Blood test abnormal [Unknown]
  - Abdominal discomfort [Unknown]
  - Miliaria [Unknown]
  - Rosacea [Unknown]
  - Constipation [Not Recovered/Not Resolved]
  - Onychomycosis [Unknown]
  - Red blood cell count increased [Recovering/Resolving]
  - COVID-19 [Unknown]
  - Tremor [Unknown]
  - Dysgeusia [Unknown]
  - Dyspepsia [Not Recovered/Not Resolved]
  - Ocular discomfort [Unknown]
  - Sinus disorder [Unknown]
  - Device use error [Unknown]
  - Incorrect dose administered [Unknown]
  - Fall [Unknown]
  - Hair texture abnormal [Unknown]
  - Ligament sprain [Unknown]
  - Muscular weakness [Unknown]
  - Anxiety [Unknown]
  - Back disorder [Unknown]
  - Blood lactate dehydrogenase increased [Unknown]
  - Lymphocyte count decreased [Unknown]
  - Monocyte count decreased [Unknown]
  - Platelet count increased [Recovering/Resolving]
  - Food poisoning [Unknown]
  - Condition aggravated [Not Recovered/Not Resolved]
  - Gastrointestinal inflammation [Unknown]
  - Diarrhoea haemorrhagic [Unknown]
  - Sinusitis [Unknown]
  - Contusion [Unknown]
  - Insomnia [Recovering/Resolving]
  - Agitation [Unknown]
  - Dyspnoea [Unknown]
  - Asthenia [Unknown]
  - Bronchitis [Unknown]
  - Hepatic enzyme increased [Not Recovered/Not Resolved]
  - Pain [Not Recovered/Not Resolved]
  - White blood cell count decreased [Unknown]
  - Haemoglobin decreased [Not Recovered/Not Resolved]
  - Haematocrit decreased [Recovered/Resolved]
  - Fatigue [Unknown]
  - Alopecia [Recovering/Resolving]
  - Nausea [Not Recovered/Not Resolved]
  - Dizziness [Unknown]

NARRATIVE: CASE EVENT DATE: 20220401
